FAERS Safety Report 25665278 (Version 1)
Quarter: 2025Q3

REPORT INFORMATION
  Report Type: Spontaneous
  Country: EU (occurrence: EU)
  Receive Date: 20250811
  Receipt Date: 20250811
  Transmission Date: 20251021
  Serious: Yes (Other)
  Sender: TAKEDA
  Company Number: EU-LUNDBECK-DKLU4017902

PATIENT
  Sex: Female

DRUGS (1)
  1. BRINTELLIX [Suspect]
     Active Substance: VORTIOXETINE HYDROBROMIDE
     Indication: Product used for unknown indication

REACTIONS (6)
  - Syncope [Unknown]
  - Pyrexia [Unknown]
  - Palpitations [Unknown]
  - Panic disorder [Unknown]
  - Hyperhidrosis [Unknown]
  - Pruritus [Unknown]
